FAERS Safety Report 5993001 (Version 2)
Quarter: 2013Q3

REPORT INFORMATION
  Report Type: Spontaneous
  Country: US (occurrence: None)
  Receive Date: 20060210
  Receipt Date: 20130809
  Transmission Date: 20140515
  Serious: Yes (Hospitalization)
  Sender: FDA-Public Use
  Company Number: 2006US-01552

PATIENT
  Age: 80 Year
  Sex: Female

DRUGS (5)
  1. CIPROFLOXACIN [Suspect]
     Indication: URINARY TRACT INFECTION
     Dosage: ORAL
     Route: 048
  2. ENALAPRIL/HYDROCHLOROTHIAZIDE [Concomitant]
  3. PREDNISONE (PREDNISONE) [Concomitant]
  4. RANITIDINE (RANITIDINE) [Concomitant]
  5. CARTEDOLOL HCL [Concomitant]

REACTIONS (4)
  - Toxic epidermal necrolysis [None]
  - Erythema multiforme [None]
  - Drug eruption [None]
  - Sepsis [None]
